FAERS Safety Report 7952447-4 (Version None)
Quarter: 2011Q4

REPORT INFORMATION
  Report Type: 
  Country: None (occurrence: None)
  Receive Date: 20111201
  Receipt Date: 20111125
  Transmission Date: 20120403
  Serious: Yes (Other)
  Sender: FDA-Public Use
  Company Number: DK-GLAXOSMITHKLINE-B0766396A

PATIENT
  Sex: Female
  Weight: 81 kg

DRUGS (3)
  1. AKARIN [Concomitant]
     Dates: start: 20080215, end: 20100701
  2. PAROXETINE HCL [Concomitant]
  3. PAROXETINE HCL [Suspect]
     Indication: DEPRESSION
     Route: 048

REACTIONS (5)
  - TEARFULNESS [None]
  - MALAISE [None]
  - SUICIDAL IDEATION [None]
  - ABDOMINAL PAIN [None]
  - INFLUENZA [None]
